FAERS Safety Report 11140626 (Version 1)
Quarter: 2015Q2

REPORT INFORMATION
  Report Type: Spontaneous
  Country: US (occurrence: US)
  Receive Date: 20150527
  Receipt Date: 20150527
  Transmission Date: 20150821
  Serious: No
  Sender: FDA-Public Use
  Company Number: US-MALLINCKRODT-QSC-2014-0701

PATIENT

DRUGS (4)
  1. RITUXAN [Suspect]
     Active Substance: RITUXIMAB
     Dosage: UNK
     Route: 042
     Dates: start: 201404, end: 20141007
  2. SOLU-MEDROL [Suspect]
     Active Substance: METHYLPREDNISOLONE SODIUM SUCCINATE
  3. H.P. ACTHAR [Suspect]
     Active Substance: CORTICOTROPIN
     Indication: DERMATOMYOSITIS
     Dosage: UNK
  4. IMURAN [Concomitant]
     Active Substance: AZATHIOPRINE

REACTIONS (19)
  - Erythema [Unknown]
  - Cognitive disorder [Unknown]
  - Retinal tear [Unknown]
  - Flushing [Unknown]
  - Asthenia [Unknown]
  - Dysphonia [Unknown]
  - Myalgia [Unknown]
  - Depressed mood [None]
  - Frustration [Unknown]
  - Blood creatine phosphokinase increased [Recovering/Resolving]
  - Muscular weakness [Unknown]
  - Fall [Unknown]
  - Movement disorder [Unknown]
  - Pain [Unknown]
  - Drug ineffective [Unknown]
  - Injection site pain [Unknown]
  - Gait disturbance [Unknown]
  - Feelings of worthlessness [Unknown]
  - Balance disorder [Unknown]

NARRATIVE: CASE EVENT DATE: 2014
